FAERS Safety Report 9060202 (Version 1)
Quarter: 2013Q1

REPORT INFORMATION
  Report Type: Report from Study
  Country: US (occurrence: US)
  Receive Date: 20130212
  Receipt Date: 20130212
  Transmission Date: 20140127
  Serious: No
  Sender: FDA-Public Use
  Company Number: US-VERTEX PHARMACEUTICALS INC.-2013-001434

PATIENT
  Age: 52 None
  Sex: Female
  Weight: 92 kg

DRUGS (6)
  1. VX-950 (TELAPREVIR) [Suspect]
     Indication: HEPATITIS C
     Dosage: 750 MG, TID
     Route: 048
     Dates: start: 20130125
  2. RIBASPHERE [Suspect]
     Indication: HEPATITIS C
     Dosage: 600 MG, BID
     Route: 048
     Dates: start: 20130125
  3. PEGASYS [Suspect]
     Indication: HEPATITIS C
     Dosage: 180 ?G, QW
     Route: 058
     Dates: start: 20130125
  4. SYNTHROID [Concomitant]
     Dosage: 75 ?G, QD
     Route: 048
  5. ZOLOFT [Concomitant]
     Dosage: 50 MG, QD
     Route: 048
  6. PRILOSEC [Concomitant]
     Dosage: 20 MG, QD
     Route: 048

REACTIONS (2)
  - Pyrexia [Unknown]
  - Fatigue [Unknown]
